FAERS Safety Report 10260128 (Version 2)
Quarter: 2014Q2

REPORT INFORMATION
  Report Type: Spontaneous
  Country: US (occurrence: US)
  Receive Date: 20140625
  Receipt Date: 20140625
  Transmission Date: 20141212
  Serious: No
  Sender: FDA-Public Use
  Company Number: US-GALDERMA-US14001422

PATIENT
  Age: 49 Year
  Sex: Female

DRUGS (8)
  1. DIFFERIN (ADAPALENE) CREAM, 0.1% [Suspect]
     Indication: ACNE
     Route: 061
     Dates: start: 2008, end: 201402
  2. UNSPECIFIED FACIAL SCRUB [Concomitant]
     Route: 061
  3. LORATADINE [Concomitant]
     Indication: MULTIPLE ALLERGIES
     Route: 048
     Dates: start: 2011
  4. MULTIVITAMINS [Concomitant]
     Route: 048
  5. AZELASTINE [Concomitant]
     Indication: SEASONAL ALLERGY
     Dosage: 1%
     Route: 045
  6. ACCUFLORA PRO-BIOTIC (ACIDOPHILUS) [Concomitant]
     Indication: PROPHYLAXIS
     Route: 048
     Dates: start: 2013
  7. SERTRALINE [Concomitant]
     Indication: DEPRESSION
     Route: 048
     Dates: start: 1994
  8. CALCIUM SUPPLEMENT [Concomitant]
     Indication: ANTACID THERAPY
     Route: 048

REACTIONS (2)
  - Pruritus generalised [Recovered/Resolved]
  - Dry skin [Not Recovered/Not Resolved]
